FAERS Safety Report 14372428 (Version 2)
Quarter: 2018Q1

REPORT INFORMATION
  Report Type: Spontaneous
  Country: US (occurrence: US)
  Receive Date: 20180110
  Receipt Date: 20180216
  Transmission Date: 20180509
  Serious: No
  Sender: FDA-Public Use
  Company Number: US-009507513-1801USA003228

PATIENT
  Age: 18 Year
  Sex: Female
  Weight: 108.84 kg

DRUGS (1)
  1. NEXPLANON [Suspect]
     Active Substance: ETONOGESTREL
     Indication: CONTRACEPTION
     Dosage: 1 DF, 3 YEARS
     Route: 059
     Dates: start: 20170710, end: 20180125

REACTIONS (4)
  - Implant site scar [Unknown]
  - Weight increased [Recovering/Resolving]
  - Menstruation irregular [Unknown]
  - Discomfort [Unknown]

NARRATIVE: CASE EVENT DATE: 20170710
